FAERS Safety Report 8000378-6 (Version None)
Quarter: 2011Q4

REPORT INFORMATION
  Report Type: 
  Country: None (occurrence: None)
  Receive Date: 20111222
  Receipt Date: 20111213
  Transmission Date: 20120403
  Serious: Yes (Hospitalization, Other)
  Sender: FDA-Public Use
  Company Number: US-BAYER-2011-048910

PATIENT
  Age: 23 Year
  Sex: Female
  Weight: 45.351 kg

DRUGS (12)
  1. HYDROMORPHONE HCL [Concomitant]
     Dosage: 4 MG, UNK
     Route: 048
  2. ZOMIG [Concomitant]
     Dosage: 2.5 MG, QD
     Route: 048
     Dates: start: 20050519
  3. ALBUTEROL [Concomitant]
     Dosage: UNK
     Dates: start: 20080118
  4. AVELOX [Concomitant]
     Dosage: 400 MG, UNK
     Route: 048
  5. FOLVITE [Concomitant]
     Dosage: 1 MG, QD
     Route: 048
     Dates: start: 20050519
  6. ENALAPRIL MALEATE [Concomitant]
     Dosage: 10 MG, UNK
     Route: 048
  7. YAZ [Suspect]
     Indication: PREMENSTRUAL SYNDROME
     Dosage: UNK
     Route: 048
     Dates: start: 20061201, end: 20070701
  8. DILAUDID [Concomitant]
  9. FOLIC ACID [Concomitant]
     Dosage: 1 MG, UNK
     Route: 048
  10. RED BLOOD CELLS [Concomitant]
  11. ANTIBIOTICS [Concomitant]
  12. MEDROXYPROGESTERONE [Concomitant]
     Dosage: 15 MG, UNK
     Route: 048

REACTIONS (3)
  - DEEP VEIN THROMBOSIS [None]
  - THROMBOSIS [None]
  - PAIN [None]
